FAERS Safety Report 6760530-4 (Version None)
Quarter: 2010Q2

REPORT INFORMATION
  Report Type: 
  Country: None (occurrence: None)
  Receive Date: 20100608
  Receipt Date: 20100602
  Transmission Date: 20101027
  Serious: Yes (Hospitalization)
  Sender: FDA-Public Use
  Company Number: JP-B.I. PHARMACEUTICALS,INC./RIDGEFIELD-2010-BP-05318NB

PATIENT
  Sex: Male
  Weight: 68.7 kg

DRUGS (10)
  1. MICARDIS [Suspect]
     Indication: HYPERTENSION
     Dosage: 40 MG
     Route: 048
     Dates: start: 20081201, end: 20100426
  2. LIPITOR [Suspect]
     Indication: MYOCARDIAL INFARCTION
     Dosage: 10 MG
     Route: 048
     Dates: start: 20081201, end: 20100507
  3. TAKEPRON [Suspect]
     Indication: MYOCARDIAL INFARCTION
     Dosage: 15 MG
     Route: 048
     Dates: start: 20081201, end: 20100507
  4. BUFFERIN [Suspect]
     Indication: MYOCARDIAL INFARCTION
     Dosage: 81 MG
     Route: 048
     Dates: start: 20081201, end: 20100507
  5. EPADEL [Suspect]
     Indication: MYOCARDIAL INFARCTION
     Dosage: 600 MCG
     Route: 048
     Dates: start: 20081201, end: 20100507
  6. ARTIST [Suspect]
     Indication: MYOCARDIAL INFARCTION
     Dosage: 5 MG
     Route: 048
     Dates: start: 20081201
  7. LASIX [Suspect]
     Indication: MYOCARDIAL INFARCTION
     Dosage: 40 MG
     Route: 048
     Dates: start: 20090101, end: 20100507
  8. ALDACTONE [Suspect]
     Indication: HYPERTENSION
     Dosage: 25 MG
     Route: 048
     Dates: start: 20081201, end: 20100507
  9. ESCARD COMBINATION TABLETS [Suspect]
     Indication: HYPERTENSION
     Dosage: 25 MG
     Route: 048
     Dates: start: 20081201, end: 20100507
  10. FRANDOL S [Concomitant]
     Indication: MYOCARDIAL INFARCTION
     Dosage: 40 MG
     Route: 062
     Dates: start: 20081201, end: 20100507

REACTIONS (2)
  - HEPATIC FUNCTION ABNORMAL [None]
  - PNEUMONIA [None]
